FAERS Safety Report 10231252 (Version 2)
Quarter: 2014Q3

REPORT INFORMATION
  Report Type: Report from Study
  Country: DE (occurrence: DE)
  Receive Date: 20140611
  Receipt Date: 20140812
  Transmission Date: 20150326
  Serious: Yes (Death, Hospitalization)
  Sender: FDA-Public Use
  Company Number: DE-BRISTOL-MYERS SQUIBB COMPANY-20975975

PATIENT
  Age: 7 Decade
  Sex: Female
  Weight: 56 kg

DRUGS (7)
  1. CALCIUM FOLINATE [Concomitant]
     Active Substance: LEUCOVORIN CALCIUM
     Indication: COLORECTAL CANCER METASTATIC
     Route: 042
     Dates: start: 20130807
  2. CORTICOSTEROID [Concomitant]
     Active Substance: CORTICOSTEROID NOS
     Route: 042
  3. FLUOROURACIL. [Concomitant]
     Active Substance: FLUOROURACIL
     Indication: COLORECTAL CANCER METASTATIC
     Route: 042
     Dates: start: 20130807
  4. ERBITUX [Suspect]
     Active Substance: CETUXIMAB
     Indication: COLORECTAL CANCER METASTATIC
     Dosage: RECENT:12MAR2014;250MG/M2
     Route: 042
     Dates: start: 20130821, end: 20140312
  5. IRINOTECAN [Concomitant]
     Active Substance: IRINOTECAN
     Indication: COLORECTAL CANCER METASTATIC
     Route: 042
     Dates: start: 20130807
  6. UREA. [Concomitant]
     Active Substance: UREA
     Indication: DRY SKIN PROPHYLAXIS
     Dosage: OINTMENT
     Route: 061
     Dates: start: 20130830
  7. PANTHENOL [Concomitant]
     Active Substance: PANTHENOL
     Indication: NASAL DISCOMFORT
     Dosage: NOCE OINTMENT
     Route: 061
     Dates: start: 20140212

REACTIONS (3)
  - Device related infection [Fatal]
  - Pulmonary embolism [Fatal]
  - Endocarditis [Fatal]

NARRATIVE: CASE EVENT DATE: 20140312
